APPROVED DRUG PRODUCT: GENTAFAIR
Active Ingredient: GENTAMICIN SULFATE
Strength: EQ 0.1% BASE
Dosage Form/Route: OINTMENT;TOPICAL
Application: A062444 | Product #001
Applicant: PHARMAFAIR INC
Approved: May 26, 1983 | RLD: No | RS: No | Type: DISCN